FAERS Safety Report 7162994-3 (Version None)
Quarter: 2010Q4

REPORT INFORMATION
  Report Type: 
  Country: None (occurrence: None)
  Receive Date: 20101215
  Receipt Date: 20100204
  Transmission Date: 20110411
  Serious: Yes (Hospitalization)
  Sender: FDA-Public Use
  Company Number: MX-PFIZER INC-2006090941

PATIENT
  Age: 72 Year
  Sex: Female

DRUGS (3)
  1. LYRICA [Suspect]
     Indication: POST HERPETIC NEURALGIA
     Route: 048
     Dates: start: 20060601
  2. DEXTROPROPOXYPHENE [Interacting]
     Route: 065
  3. AMITRIPTYLINE [Concomitant]
     Route: 065

REACTIONS (2)
  - DRUG INTERACTION [None]
  - SEDATION [None]
